FAERS Safety Report 19208216 (Version 2)
Quarter: 2021Q2

REPORT INFORMATION
  Report Type: Report from Study
  Country: ID (occurrence: ID)
  Receive Date: 20210503
  Receipt Date: 20210515
  Transmission Date: 20210717
  Serious: Yes (Death, Other)
  Sender: FDA-Public Use
  Company Number: ID-ASTRAZENECA-2021A357916

PATIENT
  Age: 20611 Day
  Sex: Female

DRUGS (2)
  1. FASLODEX [Suspect]
     Active Substance: FULVESTRANT
     Indication: BREAST CANCER METASTATIC
     Dosage: 500.0MG UNKNOWN
     Route: 030
     Dates: start: 20210208
  2. VINORELBINE [Suspect]
     Active Substance: VINORELBINE TARTRATE
     Route: 065

REACTIONS (5)
  - Drug ineffective [Fatal]
  - Metastases to lung [Fatal]
  - Metastases to liver [Fatal]
  - Injection site pain [Unknown]
  - Dyspnoea [Fatal]

NARRATIVE: CASE EVENT DATE: 20210420
